FAERS Safety Report 14692171 (Version 1)
Quarter: 2018Q1

REPORT INFORMATION
  Report Type: Report from Study
  Country: None (occurrence: BR)
  Receive Date: 20180329
  Receipt Date: 20180329
  Transmission Date: 20180509
  Serious: Yes (Hospitalization, Other)
  Sender: FDA-Public Use
  Company Number: BR-ABBVIE-18K-020-2300694-00

PATIENT
  Age: 21 Year
  Sex: Female
  Weight: 59 kg

DRUGS (2)
  1. HUMIRA [Suspect]
     Active Substance: ADALIMUMAB
     Route: 058
  2. HUMIRA [Suspect]
     Active Substance: ADALIMUMAB
     Indication: CROHN^S DISEASE
     Route: 058
     Dates: start: 20171207

REACTIONS (3)
  - Uterine cyst [Unknown]
  - Umbilical hernia [Not Recovered/Not Resolved]
  - Uterine cyst [Unknown]

NARRATIVE: CASE EVENT DATE: 201801
